FAERS Safety Report 11420832 (Version 1)
Quarter: 2015Q3

REPORT INFORMATION
  Report Type: Spontaneous
  Country: US (occurrence: US)
  Receive Date: 20150826
  Receipt Date: 20150826
  Transmission Date: 20151125
  Serious: No
  Sender: FDA-Public Use
  Company Number: US-BAYER-2015-408260

PATIENT
  Age: 74 Year
  Sex: Male
  Weight: 122.45 kg

DRUGS (1)
  1. ALEVE [Suspect]
     Active Substance: NAPROXEN SODIUM
     Indication: BACK PAIN
     Dosage: 2 DF, QD
     Route: 048
     Dates: start: 201508, end: 201508

REACTIONS (1)
  - Product use issue [None]

NARRATIVE: CASE EVENT DATE: 201508
